FAERS Safety Report 4934904-8 (Version None)
Quarter: 2006Q1

REPORT INFORMATION
  Report Type: 
  Country: None (occurrence: None)
  Receive Date: 20060303
  Receipt Date: 20060303
  Transmission Date: 20060701
  Serious: Yes (Other)
  Sender: FDA-Public Use
  Company Number: None

PATIENT
  Sex: Female
  Weight: 74.8435 kg

DRUGS (2)
  1. ABILIFY [Suspect]
     Indication: BIPOLAR I DISORDER
     Dosage: 30 MG DAILY PO
     Route: 048
     Dates: start: 20060206, end: 20060302
  2. ABILIFY [Suspect]
     Dosage: 15 MG DAILY PO
     Route: 048
     Dates: start: 20060210, end: 20060302

REACTIONS (1)
  - DEPRESSION [None]
